FAERS Safety Report 14004753 (Version 3)
Quarter: 2017Q4

REPORT INFORMATION
  Report Type: Spontaneous
  Country: US (occurrence: US)
  Receive Date: 20170922
  Receipt Date: 20171031
  Transmission Date: 20180321
  Serious: No
  Sender: FDA-Public Use
  Company Number: US-PFIZER INC-2017405208

PATIENT
  Age: 54 Year
  Sex: Female

DRUGS (1)
  1. ALAVERT ALLERGY SINUS D-12 [Suspect]
     Active Substance: LORATADINE\PSEUDOEPHEDRINE SULFATE
     Dosage: UNK [LORATADINE 5MG / PSEUDOEPHEDRINE SULFATE 120MG]

REACTIONS (6)
  - Oedema peripheral [Unknown]
  - Eyelid oedema [Unknown]
  - Goitre [Unknown]
  - Hypersensitivity [Unknown]
  - Pain [Unknown]
  - Eyelid pain [Unknown]
